FAERS Safety Report 9803673 (Version 1)
Quarter: 2014Q1

REPORT INFORMATION
  Report Type: Spontaneous
  Country: US (occurrence: US)
  Receive Date: 20140108
  Receipt Date: 20140108
  Transmission Date: 20141002
  Serious: No
  Sender: FDA-Public Use
  Company Number: US-GLAXOSMITHKLINE-A1022191A

PATIENT
  Age: 61 Year
  Sex: Male

DRUGS (13)
  1. LOVAZA [Suspect]
     Indication: BLOOD TRIGLYCERIDES INCREASED
     Dosage: 2G TWICE PER DAY
     Route: 048
  2. FLUOXETINE [Concomitant]
  3. OMEPRAZOLE [Concomitant]
  4. TOPIRAMATE [Concomitant]
  5. DICYCLOMINE [Concomitant]
  6. GLIMEPIRIDE [Concomitant]
  7. BUSPIRONE [Concomitant]
  8. ATENOLOL [Concomitant]
  9. TRILIPIX [Concomitant]
  10. OXYCODONE [Concomitant]
  11. COMPAZINE [Concomitant]
  12. ATIVAN [Concomitant]
  13. ASPIRIN [Concomitant]

REACTIONS (2)
  - Eructation [Unknown]
  - Product quality issue [Unknown]
